FAERS Safety Report 12598119 (Version 2)
Quarter: 2016Q3

REPORT INFORMATION
  Report Type: Report from Study
  Country: US (occurrence: US)
  Receive Date: 20160726
  Receipt Date: 20160812
  Transmission Date: 20161109
  Serious: Yes (Hospitalization, Other)
  Sender: FDA-Public Use
  Company Number: US-ABBVIE-16K-163-1680128-00

PATIENT
  Age: 59 Year
  Sex: Female
  Weight: 82 kg

DRUGS (5)
  1. ENALAPRIL [Concomitant]
     Active Substance: ENALAPRIL
     Indication: HYPERTENSION
  2. HUMIRA [Suspect]
     Active Substance: ADALIMUMAB
     Indication: CROHN^S DISEASE
     Route: 058
     Dates: start: 20160313
  3. HUMALOG [Concomitant]
     Active Substance: INSULIN LISPRO
     Indication: DIABETES MELLITUS
  4. LANTUS [Concomitant]
     Active Substance: INSULIN GLARGINE
     Indication: DIABETES MELLITUS
  5. IMIPRAMINE [Concomitant]
     Active Substance: IMIPRAMINE
     Indication: DEPRESSION

REACTIONS (9)
  - Oral mucosal exfoliation [Recovered/Resolved]
  - Nausea [Recovered/Resolved]
  - Candida infection [Recovered/Resolved]
  - Pyrexia [Recovered/Resolved]
  - Hypophagia [Recovered/Resolved]
  - Respiratory tract infection [Recovering/Resolving]
  - Colitis [Recovered/Resolved]
  - Crohn^s disease [Recovered/Resolved]
  - Upper respiratory tract infection [Recovered/Resolved]

NARRATIVE: CASE EVENT DATE: 201605
